FAERS Safety Report 6297805-1 (Version None)
Quarter: 2009Q3

REPORT INFORMATION
  Report Type: 
  Country: None (occurrence: None)
  Receive Date: 20090804
  Receipt Date: 20090804
  Transmission Date: 20100115
  Serious: No
  Sender: FDA-Public Use
  Company Number: None

PATIENT
  Sex: Female
  Weight: 79 kg

DRUGS (1)
  1. MORPHINE SULFATE [Suspect]
     Indication: POSTOPERATIVE ANALGESIA
     Dosage: 1 MG EVERY 5 MINUTES IV
     Route: 042
     Dates: start: 20090721, end: 20090722

REACTIONS (4)
  - DEVICE LEAKAGE [None]
  - INCORRECT DOSE ADMINISTERED [None]
  - PAIN [None]
  - SYRINGE ISSUE [None]
